FAERS Safety Report 20763308 (Version 1)
Quarter: 2022Q2

REPORT INFORMATION
  Report Type: Spontaneous
  Country: US (occurrence: None)
  Receive Date: 20220428
  Receipt Date: 20220428
  Transmission Date: 20220721
  Serious: No
  Sender: FDA-Public Use
  Company Number: 2022A153612

PATIENT
  Sex: Female

DRUGS (1)
  1. SYMBICORT [Suspect]
     Active Substance: BUDESONIDE\FORMOTEROL FUMARATE DIHYDRATE
     Indication: Asthma
     Dosage: 80/4.5 MCG, 2 INHALATIONS TWICE A DAY
     Route: 055
     Dates: start: 20220405

REACTIONS (3)
  - Epistaxis [Unknown]
  - Headache [Recovering/Resolving]
  - Prescription drug used without a prescription [Unknown]
